FAERS Safety Report 4949503-1 (Version None)
Quarter: 2006Q1

REPORT INFORMATION
  Report Type: 
  Country: None (occurrence: None)
  Receive Date: 20060315
  Receipt Date: 20060227
  Transmission Date: 20060701
  Serious: Yes (Other)
  Sender: FDA-Public Use
  Company Number: USA0509107351

PATIENT
  Age: 69 Year
  Sex: Female

DRUGS (1)
  1. EVISTA [Suspect]
     Indication: OSTEOPENIA
     Dosage: 60 MG, DAILY (1/D), ORAL
     Route: 048
     Dates: start: 20010101, end: 20050101

REACTIONS (3)
  - CATARACT OPERATION [None]
  - RETINAL HAEMORRHAGE [None]
  - RETINAL VEIN OCCLUSION [None]
